FAERS Safety Report 6005292-3 (Version None)
Quarter: 2008Q4

REPORT INFORMATION
  Report Type: 
  Country: None (occurrence: None)
  Receive Date: 20081216
  Receipt Date: 20080108
  Transmission Date: 20090506
  Serious: No
  Sender: FDA-Public Use
  Company Number: US-AMGEN-KDL258090

PATIENT
  Sex: Female

DRUGS (2)
  1. ENBREL [Suspect]
     Indication: PSORIATIC ARTHROPATHY
     Route: 058
     Dates: start: 20050701
  2. ENBREL [Suspect]
     Indication: PSORIASIS

REACTIONS (10)
  - FEAR OF DISEASE [None]
  - INJECTION SITE ERYTHEMA [None]
  - INJECTION SITE IRRITATION [None]
  - INJECTION SITE PRURITUS [None]
  - INJECTION SITE RASH [None]
  - INJECTION SITE SWELLING [None]
  - INTERVERTEBRAL DISC PROTRUSION [None]
  - PSORIASIS [None]
  - PSORIATIC ARTHROPATHY [None]
  - UPPER RESPIRATORY TRACT INFECTION [None]
